FAERS Safety Report 25728878 (Version 2)
Quarter: 2025Q3

REPORT INFORMATION
  Report Type: Spontaneous
  Country: JP (occurrence: JP)
  Receive Date: 20250826
  Receipt Date: 20250911
  Transmission Date: 20251021
  Serious: Yes (Death, Other)
  Sender: TAKEDA
  Company Number: JP-TAKEDA-2025TJP008637

PATIENT
  Age: 80 Year
  Sex: Male
  Weight: 65.7 kg

DRUGS (2)
  1. ALUNBRIG [Suspect]
     Active Substance: BRIGATINIB
     Indication: Non-small cell lung cancer recurrent
     Dates: start: 20250605, end: 20250611
  2. ALUNBRIG [Suspect]
     Active Substance: BRIGATINIB
     Dates: start: 20250612, end: 20250730

REACTIONS (2)
  - Death [Fatal]
  - Fall [Unknown]

NARRATIVE: CASE EVENT DATE: 20250730
